FAERS Safety Report 21563378 (Version 1)
Quarter: 2022Q4

REPORT INFORMATION
  Report Type: Spontaneous
  Country: US (occurrence: US)
  Receive Date: 20221108
  Receipt Date: 20221108
  Transmission Date: 20230113
  Serious: Yes (Hospitalization, Other)
  Sender: FDA-Public Use
  Company Number: US-AUROBINDO-AUR-APL-2022-045740

PATIENT
  Age: 89 Year
  Sex: Female

DRUGS (1)
  1. CLOZAPINE [Suspect]
     Active Substance: CLOZAPINE
     Indication: Product used for unknown indication
     Dosage: UNK
     Route: 065

REACTIONS (6)
  - Cerebral infarction [Unknown]
  - Vascular stent occlusion [Unknown]
  - Aphasia [Unknown]
  - Dysphagia [Unknown]
  - Essential hypertension [Unknown]
  - Neurologic neglect syndrome [Unknown]

NARRATIVE: CASE EVENT DATE: 20221014
